FAERS Safety Report 19449764 (Version 3)
Quarter: 2021Q3

REPORT INFORMATION
  Report Type: Report from Study
  Country: US (occurrence: US)
  Receive Date: 20210622
  Receipt Date: 20210909
  Transmission Date: 20211014
  Serious: No
  Sender: FDA-Public Use
  Company Number: NVSC2021US131633

PATIENT
  Age: 74 Year
  Sex: Female

DRUGS (3)
  1. METOPROLOL TARTRATE. [Suspect]
     Active Substance: METOPROLOL TARTRATE
     Indication: PRODUCT USED FOR UNKNOWN INDICATION
     Dosage: (AUG 2021 HCP DOUBLED HER DOSE)
     Route: 065
  2. ENTRESTO [Suspect]
     Active Substance: SACUBITRIL\VALSARTAN
     Indication: PRODUCT USED FOR UNKNOWN INDICATION
     Dosage: 50 MG (24/26 MG), UNKNOWN
     Route: 065
     Dates: start: 20210401
  3. ENTRESTO [Suspect]
     Active Substance: SACUBITRIL\VALSARTAN
     Indication: CARDIAC FAILURE CHRONIC
     Dosage: 100 MG  (49/51 MG), UNKNOWN
     Route: 065
     Dates: start: 202105

REACTIONS (11)
  - Weight increased [Not Recovered/Not Resolved]
  - Hypersensitivity [Recovering/Resolving]
  - Cough [Recovering/Resolving]
  - Throat clearing [Not Recovered/Not Resolved]
  - Dizziness [Recovering/Resolving]
  - Hypotension [Not Recovered/Not Resolved]
  - Sinusitis [Recovering/Resolving]
  - Somnolence [Not Recovered/Not Resolved]
  - Insomnia [Recovering/Resolving]
  - Aphonia [Recovering/Resolving]
  - Fatigue [Not Recovered/Not Resolved]

NARRATIVE: CASE EVENT DATE: 202104
